FAERS Safety Report 9960109 (Version 2)
Quarter: 2014Q1

REPORT INFORMATION
  Report Type: Report from Study
  Country: US (occurrence: US)
  Receive Date: 20140305
  Receipt Date: 20140305
  Transmission Date: 20141002
  Serious: No
  Sender: FDA-Public Use
  Company Number: US-ABBVIE-11P-163-0723417-00

PATIENT
  Age: 62 Year
  Sex: Female
  Weight: 76.73 kg

DRUGS (1)
  1. HUMIRA [Suspect]
     Indication: CROHN^S DISEASE
     Route: 058
     Dates: start: 2009, end: 2011

REACTIONS (2)
  - Psoriasis [Recovered/Resolved]
  - Rash [Recovered/Resolved]
